FAERS Safety Report 9885203 (Version 3)
Quarter: 2014Q1

REPORT INFORMATION
  Report Type: Spontaneous
  Country: GB (occurrence: GB)
  Receive Date: 20140210
  Receipt Date: 20140226
  Transmission Date: 20141002
  Serious: Yes (Other)
  Sender: FDA-Public Use
  Company Number: GB-009507513-1402GBR000994

PATIENT
  Sex: Male

DRUGS (3)
  1. ISENTRESS [Suspect]
     Dosage: 400 MG TABLET ORALLY
     Route: 048
     Dates: start: 20140128, end: 201401
  2. SEPTRIN [Concomitant]
     Dosage: UNK
  3. TRUVADA [Concomitant]
     Dosage: UNK
     Dates: end: 201401

REACTIONS (4)
  - Throat tightness [Recovered/Resolved]
  - Dyspnoea [Recovered/Resolved]
  - Urticaria [Recovered/Resolved]
  - Type I hypersensitivity [Recovered/Resolved]
